FAERS Safety Report 19981473 (Version 9)
Quarter: 2022Q2

REPORT INFORMATION
  Report Type: Report from Study
  Country: US (occurrence: US)
  Receive Date: 20211021
  Receipt Date: 20220613
  Transmission Date: 20220720
  Serious: Yes (Hospitalization, Other)
  Sender: FDA-Public Use
  Company Number: NVSC2021US234426

PATIENT
  Sex: Male

DRUGS (19)
  1. ENTRESTO [Suspect]
     Active Substance: SACUBITRIL\VALSARTAN
     Indication: Product used for unknown indication
     Dosage: 1 DF (24/26 MG), BID
     Route: 048
     Dates: start: 202107
  2. PAROXETINE [Suspect]
     Active Substance: PAROXETINE
     Indication: Product used for unknown indication
     Route: 065
  3. TRAMADOL [Suspect]
     Active Substance: TRAMADOL
     Indication: Product used for unknown indication
     Route: 065
  4. TADALAFIL [Suspect]
     Active Substance: TADALAFIL
     Indication: Product used for unknown indication
     Dosage: UNK, UNKNOWN
     Route: 065
  5. BUMETANIDE [Suspect]
     Active Substance: BUMETANIDE
     Indication: Product used for unknown indication
     Dosage: UNK
     Route: 065
  6. AMIODARONE [Suspect]
     Active Substance: AMIODARONE
     Indication: Product used for unknown indication
     Dosage: UNK
     Route: 065
  7. DIGOXIN [Suspect]
     Active Substance: DIGOXIN
     Indication: Product used for unknown indication
     Dosage: UNK
     Route: 065
  8. TRAZODONE [Suspect]
     Active Substance: TRAZODONE HYDROCHLORIDE
     Indication: Insomnia
     Dosage: UNK
     Route: 065
  9. TRAZODONE [Suspect]
     Active Substance: TRAZODONE HYDROCHLORIDE
     Dosage: 0.5 DOSAGE FORM (50 MG)
     Route: 065
  10. UNSPECIFIED INGREDIENT [Suspect]
     Active Substance: UNSPECIFIED INGREDIENT
     Indication: Product used for unknown indication
     Route: 065
  11. ASPIRIN [Suspect]
     Active Substance: ASPIRIN
     Indication: Product used for unknown indication
     Dosage: UNK
     Route: 065
  12. METOPROLOL [Suspect]
     Active Substance: METOPROLOL
     Indication: Product used for unknown indication
     Dosage: UNK, BID
     Route: 065
  13. METOPROLOL [Suspect]
     Active Substance: METOPROLOL
     Dosage: UNK, QD
     Route: 065
  14. METOPROLOL [Suspect]
     Active Substance: METOPROLOL
     Dosage: UNK, BID
     Route: 065
  15. METOPROLOL [Suspect]
     Active Substance: METOPROLOL
     Route: 065
  16. ELIQUIS [Concomitant]
     Active Substance: APIXABAN
     Indication: Product used for unknown indication
     Route: 065
  17. ACETYLCARNITINE [Concomitant]
     Active Substance: ACETYLCARNITINE
     Indication: Product used for unknown indication
     Dosage: UNK
     Route: 065
  18. COENZYME Q10 [Concomitant]
     Active Substance: DIETARY SUPPLEMENT\UBIDECARENONE
     Indication: Product used for unknown indication
     Dosage: UNK
     Route: 065
  19. VITAMIN D [Concomitant]
     Active Substance: VITAMIN D NOS
     Indication: Product used for unknown indication
     Dosage: UNK
     Route: 065

REACTIONS (24)
  - Atrial fibrillation [Recovered/Resolved]
  - Oedema peripheral [Unknown]
  - Ejection fraction decreased [Recovering/Resolving]
  - Loss of consciousness [Unknown]
  - Aortic valve incompetence [Unknown]
  - Cardiac flutter [Unknown]
  - Syncope [Unknown]
  - Heart rate increased [Unknown]
  - Stress [Unknown]
  - Anxiety disorder [Unknown]
  - Dyspnoea exertional [Recovered/Resolved]
  - Chest pain [Unknown]
  - Weight increased [Unknown]
  - Weight loss poor [Unknown]
  - Feeling abnormal [Unknown]
  - Insomnia [Recovering/Resolving]
  - Back pain [Unknown]
  - Back disorder [Unknown]
  - Visual impairment [Unknown]
  - Blood pressure systolic increased [Unknown]
  - Dizziness [Unknown]
  - Abdominal distension [Unknown]
  - Weight decreased [Unknown]
  - Product dose omission issue [Unknown]
